FAERS Safety Report 24156374 (Version 1)
Quarter: 2024Q3

REPORT INFORMATION
  Report Type: Spontaneous
  Country: US (occurrence: None)
  Receive Date: 20240730
  Receipt Date: 20240730
  Transmission Date: 20241017
  Serious: Yes (Disabling)
  Sender: Public
  Company Number: None

PATIENT
  Age: 29 Year
  Sex: Male
  Weight: 63.9 kg

DRUGS (5)
  1. AIMOVIG [Suspect]
     Active Substance: ERENUMAB-AOOE
     Indication: Migraine
     Dates: start: 20240719, end: 20240719
  2. RIZATRIPTAN [Concomitant]
     Active Substance: RIZATRIPTAN
  3. MAGNESIUM OXIDE [Concomitant]
     Active Substance: MAGNESIUM OXIDE
  4. VITAMIN B [Concomitant]
     Active Substance: VITAMIN B
  5. CREATINE [Concomitant]
     Active Substance: CREATINE

REACTIONS (4)
  - Influenza like illness [None]
  - Arthralgia [None]
  - Joint swelling [None]
  - Joint swelling [None]

NARRATIVE: CASE EVENT DATE: 20240719
